FAERS Safety Report 6569697-4 (Version None)
Quarter: 2010Q1

REPORT INFORMATION
  Report Type: 
  Country: None (occurrence: None)
  Receive Date: 20100204
  Receipt Date: 20100126
  Transmission Date: 20100710
  Serious: Yes (Other)
  Sender: FDA-Public Use
  Company Number: PHHY2010GB05476

PATIENT
  Sex: Male

DRUGS (1)
  1. CLOZARIL [Suspect]
     Indication: SCHIZOPHRENIA
     Dosage: UNK
     Dates: start: 20080529

REACTIONS (4)
  - CONSTIPATION [None]
  - DIARRHOEA [None]
  - INFLAMMATORY BOWEL DISEASE [None]
  - MALAISE [None]
